FAERS Safety Report 9279535 (Version 2)
Quarter: 2019Q3

REPORT INFORMATION
  Report Type: Report from Study
  Country: DE (occurrence: DE)
  Receive Date: 20130509
  Receipt Date: 20190813
  Transmission Date: 20191005
  Serious: Yes (Death, Other)
  Sender: FDA-Public Use
  Company Number: DE-ROCHE-1220310

PATIENT

DRUGS (4)
  1. CISPLATIN. [Suspect]
     Active Substance: CISPLATIN
     Indication: GASTRIC CANCER
     Route: 042
  2. CAPECITABINE. [Suspect]
     Active Substance: CAPECITABINE
     Indication: GASTRIC CANCER
     Dosage: FROM THE EVENING OF DAY 1 TO MORNING OF DAY 15
     Route: 048
  3. CETUXIMAB. [Suspect]
     Active Substance: CETUXIMAB
     Indication: GASTRIC CANCER
     Dosage: FIRST INFUSION
     Route: 065
  4. CETUXIMAB. [Suspect]
     Active Substance: CETUXIMAB
     Route: 065

REACTIONS (29)
  - Vomiting [Unknown]
  - Asthenia [Unknown]
  - Hypocalcaemia [Unknown]
  - Dermatitis acneiform [Unknown]
  - Infusion related reaction [Unknown]
  - Hyponatraemia [Unknown]
  - Cardiac failure congestive [Unknown]
  - Cardiac disorder [Unknown]
  - Fatigue [Unknown]
  - Hypomagnesaemia [Unknown]
  - Anaemia [Unknown]
  - Thrombocytopenia [Unknown]
  - Sepsis [Unknown]
  - Nausea [Unknown]
  - Neutropenia [Unknown]
  - Leukopenia [Unknown]
  - Hypokalaemia [Unknown]
  - Palmar-plantar erythrodysaesthesia syndrome [Unknown]
  - Skin reaction [Unknown]
  - Ischaemia [Unknown]
  - Cardiac arrest [Unknown]
  - Mucosal inflammation [Unknown]
  - Arrhythmia [Unknown]
  - Decreased appetite [Unknown]
  - Sudden death [Fatal]
  - Pulmonary embolism [Unknown]
  - Diarrhoea [Unknown]
  - Myocardial infarction [Unknown]
  - Rash [Unknown]
